FAERS Safety Report 9414940 (Version 1)
Quarter: 2013Q3

REPORT INFORMATION
  Report Type: Spontaneous
  Country: US (occurrence: US)
  Receive Date: 20130723
  Receipt Date: 20130723
  Transmission Date: 20140515
  Serious: Yes (Other)
  Sender: FDA-Public Use
  Company Number: US-ROCHE-1251311

PATIENT
  Sex: Female

DRUGS (12)
  1. VALIUM [Suspect]
     Indication: PRODUCT USED FOR UNKNOWN INDICATION
     Route: 065
  2. ATIVAN [Concomitant]
  3. BENADRYL (UNITED STATES) [Concomitant]
  4. BIAXIN (UNITED STATES) [Concomitant]
  5. NEOMYCIN [Concomitant]
  6. PHENERGAN [Concomitant]
  7. REGLAN [Concomitant]
  8. XANAX [Concomitant]
  9. DIFLUCAN [Concomitant]
  10. LIPITOR [Concomitant]
     Dosage: QHS
     Route: 048
  11. NITROSTAT [Concomitant]
     Route: 065
  12. ZOFRAN [Concomitant]

REACTIONS (7)
  - Anaphylactic reaction [Unknown]
  - Tremor [Unknown]
  - Rash [Unknown]
  - Heart rate increased [Unknown]
  - Urticaria [Unknown]
  - Eye swelling [Unknown]
  - Eye pruritus [Unknown]
